FAERS Safety Report 8974559 (Version 1)
Quarter: 2012Q4

REPORT INFORMATION
  Report Type: 
  Country: US (occurrence: US)
  Receive Date: 20121219
  Receipt Date: 20121219
  Transmission Date: 20130627
  Serious: No
  Sender: FDA-Public Use
  Company Number: US-AMGEN-USASP2012055799

PATIENT
  Age: 74 Year
  Sex: Female
  Weight: 79.37 kg

DRUGS (4)
  1. PROLIA [Suspect]
     Indication: OSTEOPOROSIS
     Dosage: 60 mg, q6mo
     Route: 058
     Dates: start: 20110413, end: 20120815
  2. PROLIA [Suspect]
     Dosage: 60 mg, q6mo
     Route: 058
     Dates: start: 20111019
  3. PROLIA [Suspect]
     Dosage: 60 mg, q6mo
     Route: 058
     Dates: start: 20120508, end: 20120815
  4. VITAMIN D NOS [Concomitant]

REACTIONS (3)
  - Hypoaesthesia [Recovered/Resolved]
  - Abdominal pain [Recovered/Resolved]
  - Hypocalcaemia [Recovered/Resolved]
